FAERS Safety Report 16702985 (Version 1)
Quarter: 2019Q3

REPORT INFORMATION
  Report Type: Report from Study
  Country: US (occurrence: US)
  Receive Date: 20190814
  Receipt Date: 20190814
  Transmission Date: 20191004
  Serious: Yes (Hospitalization)
  Sender: FDA-Public Use
  Company Number: US-GILEAD-2019-0423505

PATIENT
  Age: 55 Year
  Sex: Male

DRUGS (3)
  1. AZTREONAM LYSINE [Suspect]
     Active Substance: AZTREONAM LYSINE
     Indication: CYSTIC FIBROSIS
     Dosage: 75 MG, TID
     Dates: start: 20140123
  2. NOVOLOG [Concomitant]
     Active Substance: INSULIN ASPART
  3. PULMOZYME [Concomitant]
     Active Substance: DORNASE ALFA
     Dosage: UNK

REACTIONS (1)
  - Haemoptysis [Not Recovered/Not Resolved]

NARRATIVE: CASE EVENT DATE: 201907
